FAERS Safety Report 6048558-3 (Version None)
Quarter: 2009Q1

REPORT INFORMATION
  Report Type: 
  Country: None (occurrence: None)
  Receive Date: 20090122
  Receipt Date: 20090122
  Transmission Date: 20090719
  Serious: Yes (Other)
  Sender: FDA-Public Use
  Company Number: None

PATIENT
  Age: 44 Year
  Sex: Female
  Weight: 72.5755 kg

DRUGS (1)
  1. NORVASC [Suspect]
     Indication: HYPERTENSION
     Dosage: 10 MG 1 A DAY PO
     Route: 048
     Dates: start: 20060105, end: 20081226

REACTIONS (8)
  - BALANCE DISORDER [None]
  - CHEST PAIN [None]
  - DEREALISATION [None]
  - HEADACHE [None]
  - INSOMNIA [None]
  - NIGHTMARE [None]
  - POSTNASAL DRIP [None]
  - TINNITUS [None]
